FAERS Safety Report 17442591 (Version 3)
Quarter: 2020Q1

REPORT INFORMATION
  Report Type: Spontaneous
  Country: BR (occurrence: BR)
  Receive Date: 20200220
  Receipt Date: 20200313
  Transmission Date: 20200409
  Serious: Yes (Life-Threatening, Hospitalization, Disabling, Other)
  Sender: FDA-Public Use
  Company Number: BR-GEHC-2020CSU000797

PATIENT

DRUGS (6)
  1. ENALAPRIL [Concomitant]
     Active Substance: ENALAPRIL
     Dosage: 10 MG, BID
  2. OMNIPAQUE [Suspect]
     Active Substance: IOHEXOL
     Indication: COMPUTERISED TOMOGRAM PELVIS
  3. OMNIPAQUE [Suspect]
     Active Substance: IOHEXOL
     Indication: PROSTATE CANCER
  4. HCTZ [Concomitant]
     Active Substance: HYDROCHLOROTHIAZIDE
     Dosage: 25 MG, QD
  5. OMNIPAQUE [Suspect]
     Active Substance: IOHEXOL
     Indication: COMPUTERISED TOMOGRAM ABDOMEN
  6. OMNIPAQUE [Suspect]
     Active Substance: IOHEXOL
     Indication: COMPUTERISED TOMOGRAM THORAX
     Dosage: 100 ML, SINGLE
     Route: 042
     Dates: start: 20200214, end: 20200214

REACTIONS (5)
  - Anaphylactic shock [Recovered/Resolved]
  - Polyuria [Recovered/Resolved]
  - Cardio-respiratory arrest [Recovered/Resolved]
  - Psychomotor hyperactivity [Recovered/Resolved]
  - Depressed level of consciousness [Recovered/Resolved]

NARRATIVE: CASE EVENT DATE: 20200214
